FAERS Safety Report 5143148-9 (Version None)
Quarter: 2006Q4

REPORT INFORMATION
  Report Type: 
  Country: None (occurrence: None)
  Receive Date: 20061103
  Receipt Date: 20061027
  Transmission Date: 20070319
  Serious: Yes (Hospitalization)
  Sender: FDA-Public Use
  Company Number: FR-AVENTIS-200613829FR

PATIENT
  Age: 83 Year
  Sex: Female
  Weight: 55 kg

DRUGS (5)
  1. LASILIX                            /00032601/ [Suspect]
     Route: 048
  2. ALDACTONE [Suspect]
     Route: 048
  3. RENITEC                            /00574901/ [Suspect]
     Route: 048
  4. LEVOTHYROXINE SODIUM [Concomitant]
     Route: 048
  5. DIFFU K [Concomitant]
     Route: 048

REACTIONS (11)
  - ARRHYTHMIA [None]
  - ASTHENIA [None]
  - ATRIAL FIBRILLATION [None]
  - DEHYDRATION [None]
  - DIARRHOEA [None]
  - FALL [None]
  - FOLATE DEFICIENCY [None]
  - HYPERKALAEMIA [None]
  - IRON DEFICIENCY [None]
  - RENAL FAILURE ACUTE [None]
  - VOMITING [None]
